FAERS Safety Report 7418424-7 (Version None)
Quarter: 2011Q2

REPORT INFORMATION
  Report Type: 
  Country: None (occurrence: None)
  Receive Date: 20110415
  Receipt Date: 20110406
  Transmission Date: 20111010
  Serious: Yes (Other)
  Sender: FDA-Public Use
  Company Number: PHHY2011CH28811

PATIENT

DRUGS (3)
  1. ATENIL MITE [Suspect]
     Indication: HYPERTENSION
     Dosage: UNK UKN, UNK
  2. INDERAL LA [Concomitant]
     Indication: HYPERTENSION
  3. PANTOPRAZOLE [Concomitant]
     Dosage: UNK UKN, UNK

REACTIONS (9)
  - MULTIPLE SCLEROSIS [None]
  - BURNING SENSATION [None]
  - PRURITUS [None]
  - MONOPLEGIA [None]
  - HYPOAESTHESIA [None]
  - HEADACHE [None]
  - OEDEMA [None]
  - VISUAL IMPAIRMENT [None]
  - PARAESTHESIA [None]
